FAERS Safety Report 24412796 (Version 1)
Quarter: 2024Q4

REPORT INFORMATION
  Report Type: Spontaneous
  Country: US (occurrence: US)
  Receive Date: 20241008
  Receipt Date: 20241008
  Transmission Date: 20250114
  Serious: No
  Sender: Haleon PLC
  Company Number: US-SANDOZ-SDZ2023US017881

PATIENT
  Sex: Male
  Weight: 80.45 kg

DRUGS (7)
  1. VOLTAREN [Suspect]
     Active Substance: DICLOFENAC SODIUM
     Indication: Osteoarthritis
  2. GABAPENTIN [Suspect]
     Active Substance: GABAPENTIN
     Indication: Arthritis
  3. RIFAMPIN [Suspect]
     Active Substance: RIFAMPIN
     Indication: Tuberculosis
  4. TRAMADOL [Suspect]
     Active Substance: TRAMADOL
     Indication: Arthritis
  5. PREDNISONE [Suspect]
     Active Substance: PREDNISONE
     Indication: Ankylosing spondylitis
  6. SULFASALAZINE [Suspect]
     Active Substance: SULFASALAZINE
     Indication: Arthritis
  7. ETHAMBUTOL [Suspect]
     Active Substance: ETHAMBUTOL HYDROCHLORIDE
     Indication: Tuberculosis

REACTIONS (1)
  - Therapeutic product effect incomplete [Unknown]
